FAERS Safety Report 20082150 (Version 1)
Quarter: 2021Q4

REPORT INFORMATION
  Report Type: Report from Study
  Country: BR (occurrence: BR)
  Receive Date: 20211117
  Receipt Date: 20211117
  Transmission Date: 20220303
  Serious: Yes (Other)
  Sender: FDA-Public Use
  Company Number: BR-NOVARTISPH-NVSC2021BR259573

PATIENT
  Age: 49 Year
  Sex: Female

DRUGS (8)
  1. ANASTROZOLE [Suspect]
     Active Substance: ANASTROZOLE
     Indication: Product used for unknown indication
     Dosage: UNK
     Route: 065
     Dates: end: 2009
  2. ANASTROZOLE [Suspect]
     Active Substance: ANASTROZOLE
     Dosage: UNK
     Route: 065
  3. TAMOXIFEN [Suspect]
     Active Substance: TAMOXIFEN
     Indication: Product used for unknown indication
     Dosage: UNK
     Route: 065
  4. FULVESTRANT [Concomitant]
     Active Substance: FULVESTRANT
     Indication: Hormone therapy
     Dosage: UNK
     Route: 065
  5. EVEROLIMUS [Concomitant]
     Active Substance: EVEROLIMUS
     Indication: Product used for unknown indication
     Dosage: UNK
     Route: 065
  6. EXEMESTANE [Concomitant]
     Active Substance: EXEMESTANE
     Indication: Hormone therapy
     Dosage: UNK
     Route: 065
  7. EXEMESTANE [Concomitant]
     Active Substance: EXEMESTANE
     Indication: Postoperative care
  8. CAPECITABINE [Concomitant]
     Active Substance: CAPECITABINE
     Indication: Product used for unknown indication
     Dosage: UNK
     Route: 065
     Dates: start: 201901

REACTIONS (8)
  - Malignant neoplasm progression [Unknown]
  - Benign lymph node neoplasm [Unknown]
  - Invasive lobular breast carcinoma [Unknown]
  - Metastases to lymph nodes [Unknown]
  - Breast cancer [Unknown]
  - Breast mass [Unknown]
  - Disease recurrence [Unknown]
  - Disease progression [Unknown]

NARRATIVE: CASE EVENT DATE: 20150101
